FAERS Safety Report 12663178 (Version 1)
Quarter: 2016Q3

REPORT INFORMATION
  Report Type: Spontaneous
  Country: US (occurrence: None)
  Receive Date: 20160817
  Receipt Date: 20160817
  Transmission Date: 20161109
  Serious: No
  Sender: FDA-Public Use
  Company Number: None

PATIENT
  Age: 46 Year
  Sex: Female

DRUGS (5)
  1. VITAMIN B12 [Concomitant]
     Active Substance: CYANOCOBALAMIN
  2. VITAMIN E [Concomitant]
     Active Substance: .ALPHA.-TOCOPHEROL
  3. PROBIOTICS [Concomitant]
     Active Substance: PROBIOTICS NOS
  4. VITAMIN D [Concomitant]
     Active Substance: CHOLECALCIFEROL
  5. TERBINAFINE HYDROCHLORIDE, 250 MG [Suspect]
     Active Substance: TERBINAFINE HYDROCHLORIDE
     Indication: ONYCHOMYCOSIS
     Route: 048
     Dates: start: 20160629, end: 20160803

REACTIONS (1)
  - Menstruation irregular [None]

NARRATIVE: CASE EVENT DATE: 20160724
